FAERS Safety Report 23411294 (Version 1)
Quarter: 2024Q1

REPORT INFORMATION
  Report Type: Spontaneous
  Country: US (occurrence: US)
  Receive Date: 20240117
  Receipt Date: 20240117
  Transmission Date: 20240409
  Serious: No
  Sender: FDA-Public Use
  Company Number: US-FERRINGPH-2023FE05491

PATIENT
  Age: 63 Year
  Sex: Female

DRUGS (1)
  1. CLENPIQ [Suspect]
     Active Substance: ANHYDROUS CITRIC ACID\MAGNESIUM OXIDE\SODIUM PICOSULFATE
     Indication: Product used for unknown indication
     Dosage: UNK, 2 BOTTLES
     Route: 065
     Dates: start: 202309, end: 202309

REACTIONS (4)
  - Pruritus [Recovered/Resolved]
  - Discomfort [Recovered/Resolved]
  - Urticaria [Recovered/Resolved]
  - Product packaging difficult to open [Unknown]

NARRATIVE: CASE EVENT DATE: 20230901
